FAERS Safety Report 7770651-5 (Version None)
Quarter: 2011Q3

REPORT INFORMATION
  Report Type: 
  Country: None (occurrence: None)
  Receive Date: 20110922
  Receipt Date: 20110919
  Transmission Date: 20111222
  Serious: Yes (Hospitalization)
  Sender: FDA-Public Use
  Company Number: PHEH2011US03288

PATIENT
  Sex: Female

DRUGS (4)
  1. ASPIRIN [Concomitant]
     Dosage: UNK UKN, UNK
  2. VOLTAREN [Suspect]
     Indication: JOINT DISLOCATION
     Dosage: ONCE DAILY
     Route: 048
     Dates: start: 19900101, end: 20101001
  3. ESTRACE [Concomitant]
     Dosage: 1 MG, QD
  4. DICLOFENAC SODIUM [Suspect]
     Dosage: ONCE DAILY
     Dates: start: 19900101, end: 20101001

REACTIONS (4)
  - FEELING HOT [None]
  - LOSS OF CONSCIOUSNESS [None]
  - HEADACHE [None]
  - GASTRIC PERFORATION [None]
